FAERS Safety Report 8480692-0 (Version None)
Quarter: 2012Q3

REPORT INFORMATION
  Report Type: 
  Country: None (occurrence: None)
  Receive Date: 20120702
  Receipt Date: 20120625
  Transmission Date: 20120928
  Serious: No
  Sender: FDA-Public Use
  Company Number: US-PFIZER INC-2012118650

PATIENT
  Sex: Female
  Weight: 95.238 kg

DRUGS (2)
  1. DEMULEN 1/35-21 [Suspect]
     Indication: HIRSUTISM
  2. DEMULEN 1/35-21 [Suspect]
     Indication: HORMONE LEVEL ABNORMAL
     Dosage: 1 DF, UNK
     Route: 048
     Dates: start: 19860101, end: 20000101

REACTIONS (1)
  - THERAPEUTIC RESPONSE UNEXPECTED [None]
